FAERS Safety Report 9686263 (Version 1)
Quarter: 2013Q4

REPORT INFORMATION
  Report Type: Spontaneous
  Country: GB (occurrence: GB)
  Receive Date: 20131113
  Receipt Date: 20131113
  Transmission Date: 20140711
  Serious: Yes (Death, Other)
  Sender: FDA-Public Use
  Company Number: GB-WATSON-2013-20835

PATIENT
  Sex: Female

DRUGS (3)
  1. VANCOMYCIN (UNKNOWN) [Suspect]
     Indication: STAPHYLOCOCCAL SEPSIS
     Dosage: UNK
     Route: 065
  2. DAPTOMYCIN [Suspect]
     Indication: STAPHYLOCOCCAL SEPSIS
     Dosage: UNK
     Route: 065
     Dates: end: 201303
  3. DAPTOMYCIN [Suspect]
     Indication: OFF LABEL USE
     Dosage: UNK
     Route: 065

REACTIONS (2)
  - Staphylococcal sepsis [Fatal]
  - Skin mass [Recovering/Resolving]
